FAERS Safety Report 4345375-7 (Version None)
Quarter: 2004Q2

REPORT INFORMATION
  Report Type: 
  Country: None (occurrence: None)
  Receive Date: 20040421
  Receipt Date: 20040408
  Transmission Date: 20050107
  Serious: Yes (Hospitalization)
  Sender: FDA-Public Use
  Company Number: 2004019912

PATIENT
  Age: 43 Year
  Sex: Female

DRUGS (4)
  1. NIFEDIPINE [Suspect]
     Indication: ANGINA PECTORIS
     Dosage: 40 MG DAILY ORAL
     Route: 048
  2. ISOSORBIDE DINITRATE [Concomitant]
  3. NICORANDIL [Concomitant]
  4. DILTIAZEM [Concomitant]

REACTIONS (4)
  - ASTHMA [None]
  - C-REACTIVE PROTEIN INCREASED [None]
  - ELECTROCARDIOGRAM ST SEGMENT ELEVATION [None]
  - PRINZMETAL ANGINA [None]
